FAERS Safety Report 18234891 (Version 1)
Quarter: 2020Q3

REPORT INFORMATION
  Report Type: Spontaneous
  Country: SE (occurrence: SE)
  Receive Date: 20200904
  Receipt Date: 20200904
  Transmission Date: 20201103
  Serious: Yes (Other)
  Sender: FDA-Public Use
  Company Number: SE-PFIZER INC-2020343567

PATIENT
  Age: 79 Year
  Sex: Female

DRUGS (10)
  1. GABAPENTIN. [Concomitant]
     Active Substance: GABAPENTIN
     Dosage: 300 MG, 1X/DAY
     Dates: start: 20200505
  2. LETROZOLE. [Concomitant]
     Active Substance: LETROZOLE
     Dosage: 2.5 MG, 1X/DAY
     Dates: start: 20200515
  3. POSTAFEN [MECLOZINE HYDROCHLORIDE] [Concomitant]
     Active Substance: MECLIZINE MONOHYDROCHLORIDE
     Dosage: 25 MG, AS NEEDED, MAX 2 PIECES PER DAY
     Dates: start: 20200515
  4. ALVEDON [Concomitant]
     Active Substance: ACETAMINOPHEN
     Dosage: 3000 MG, 1X/DAY
     Dates: start: 20190820
  5. IBRANCE [Suspect]
     Active Substance: PALBOCICLIB
     Indication: BREAST CANCER
     Dosage: 100 MG, 1X/DAY
     Route: 048
     Dates: start: 20200708, end: 20200803
  6. OXYNORM [Concomitant]
     Active Substance: OXYCODONE HYDROCHLORIDE
     Dosage: 5 MG, AS NEEDED
     Dates: start: 20200602
  7. ENALAPRIL [Concomitant]
     Active Substance: ENALAPRIL
     Dosage: 20 MG, 1X/DAY
     Dates: start: 20200623
  8. ENALAPRIL [Concomitant]
     Active Substance: ENALAPRIL
     Dosage: 20 MG, 1X/DAY
     Dates: start: 20180611
  9. ATORVASTATIN [Concomitant]
     Active Substance: ATORVASTATIN
     Dosage: 20 MG, 1X/DAY
     Dates: start: 20180611
  10. CILAXORAL [Concomitant]
     Active Substance: SODIUM PICOSULFATE
     Dosage: 10?20 DROP, AS NEEDED
     Route: 048
     Dates: start: 20200515

REACTIONS (1)
  - Blood creatinine increased [Recovering/Resolving]

NARRATIVE: CASE EVENT DATE: 20200727
